FAERS Safety Report 4512374-1 (Version None)
Quarter: 2004Q4

REPORT INFORMATION
  Report Type: 
  Country: None (occurrence: None)
  Receive Date: 20041123
  Receipt Date: 20041105
  Transmission Date: 20050328
  Serious: Yes (Hospitalization)
  Sender: FDA-Public Use
  Company Number: DSA_25334_2004

PATIENT
  Age: 38 Year
  Sex: Male

DRUGS (8)
  1. TEMESTA [Suspect]
     Dosage: 2.5 MG Q DAY PO
     Route: 048
     Dates: start: 20040823, end: 20040823
  2. ZYPREXA [Suspect]
     Dosage: 20 MG Q DAY PO
     Route: 048
     Dates: start: 20040824, end: 20040825
  3. ATENOLOL [Suspect]
     Dosage: 50 MG Q DAY PO
     Route: 048
     Dates: start: 20040823
  4. ZESTORETIC [Suspect]
     Dosage: DF
  5. CAPTOPRIL [Concomitant]
  6. ADALAT [Concomitant]
  7. NITROLINGUAL [Concomitant]
  8. CATAPRES [Concomitant]

REACTIONS (2)
  - PLATELET COUNT DECREASED [None]
  - WHITE BLOOD CELL COUNT DECREASED [None]
